FAERS Safety Report 21689030 (Version 7)
Quarter: 2025Q1

REPORT INFORMATION
  Report Type: Spontaneous
  Country: CA (occurrence: CA)
  Receive Date: 20221206
  Receipt Date: 20250305
  Transmission Date: 20250408
  Serious: Yes (Hospitalization, Other)
  Sender: PFIZER
  Company Number: CA-PFIZER INC-202201074525

PATIENT
  Age: 74 Year
  Sex: Female
  Weight: 71 kg

DRUGS (3)
  1. RUXIENCE [Suspect]
     Active Substance: RITUXIMAB-PVVR
     Indication: Dermatomyositis
     Route: 042
     Dates: start: 20221114, end: 2022
  2. RUXIENCE [Suspect]
     Active Substance: RITUXIMAB-PVVR
     Indication: Pneumonia
     Route: 042
     Dates: start: 202309
  3. RUXIENCE [Suspect]
     Active Substance: RITUXIMAB-PVVR
     Indication: Interstitial lung disease

REACTIONS (8)
  - Spinal fracture [Unknown]
  - Stoma creation [Recovering/Resolving]
  - Haemorrhage [Recovered/Resolved]
  - COVID-19 [Recovered/Resolved]
  - Neoplasm malignant [Recovering/Resolving]
  - Off label use [Unknown]
  - COVID-19 [Not Recovered/Not Resolved]
  - Anxiety [Unknown]

NARRATIVE: CASE EVENT DATE: 20221114
